FAERS Safety Report 9179045 (Version 2)
Quarter: 2013Q2

REPORT INFORMATION
  Report Type: Report from Study
  Country: FR (occurrence: FR)
  Receive Date: 20130321
  Receipt Date: 20130604
  Transmission Date: 20140414
  Serious: Yes (Other)
  Sender: FDA-Public Use
  Company Number: FR-ROCHE-1203218

PATIENT
  Sex: 0

DRUGS (4)
  1. BEVACIZUMAB [Suspect]
     Indication: METASTATIC RENAL CELL CARCINOMA
     Route: 065
  2. BEVACIZUMAB [Suspect]
     Indication: NEOPLASM
  3. PAZOPANIB [Suspect]
     Indication: NEOPLASM
     Route: 065
  4. PAZOPANIB [Suspect]
     Indication: METASTATIC RENAL CELL CARCINOMA
     Route: 065

REACTIONS (4)
  - Pulmonary embolism [Unknown]
  - Aspartate aminotransferase increased [Unknown]
  - Microangiopathic haemolytic anaemia [Unknown]
  - Alanine aminotransferase increased [Unknown]
